FAERS Safety Report 15460599 (Version 1)
Quarter: 2018Q4

REPORT INFORMATION
  Report Type: Spontaneous
  Country: ES (occurrence: ES)
  Receive Date: 20181003
  Receipt Date: 20181003
  Transmission Date: 20190204
  Serious: Yes (Hospitalization, Other)
  Sender: FDA-Public Use
  Company Number: PHHY2017ES131891

PATIENT
  Age: 66 Year
  Sex: Male

DRUGS (4)
  1. EVEROLIMUS. [Suspect]
     Active Substance: EVEROLIMUS
     Indication: GRAFT VERSUS HOST DISEASE IN SKIN
     Dosage: 0.5 MG, BID
     Route: 065
     Dates: start: 201607
  2. EVEROLIMUS. [Interacting]
     Active Substance: EVEROLIMUS
     Indication: CHRONIC GRAFT VERSUS HOST DISEASE
     Dosage: 1 MG, QHS
     Route: 065
     Dates: start: 20160809, end: 20160829
  3. ST. JOHN^S WORT [Interacting]
     Active Substance: ST. JOHN^S WORT
     Indication: COUGH
     Dosage: 8 DF, QD
     Route: 065
  4. EVEROLIMUS. [Interacting]
     Active Substance: EVEROLIMUS
     Indication: PROPHYLAXIS AGAINST TRANSPLANT REJECTION
     Dosage: 0.5 UNK, UNK
     Route: 048

REACTIONS (7)
  - Product use in unapproved indication [Unknown]
  - Sepsis [Unknown]
  - Drug interaction [Unknown]
  - Drug level decreased [Unknown]
  - Pulmonary toxicity [Unknown]
  - Chemotherapeutic drug level decreased [Unknown]
  - Pulmonary sepsis [Unknown]
